FAERS Safety Report 7378939-7 (Version None)
Quarter: 2011Q1

REPORT INFORMATION
  Report Type: 
  Country: None (occurrence: None)
  Receive Date: 20110328
  Receipt Date: 20110325
  Transmission Date: 20110831
  Serious: Yes (Disabling)
  Sender: FDA-Public Use
  Company Number: GXKR2011DE01298

PATIENT
  Sex: Male

DRUGS (3)
  1. TELFAST                                 /SCH/ [Suspect]
     Route: 065
  2. IBUPROFEN [Suspect]
     Indication: GOUT
     Dosage: 600 MG, UNK
     Route: 065
  3. DICLOFENAC [Suspect]
     Dosage: UNK
     Route: 065

REACTIONS (3)
  - LIVER DISORDER [None]
  - SPLEEN DISORDER [None]
  - ARTHRALGIA [None]
